FAERS Safety Report 10098666 (Version 1)
Quarter: 2014Q2

REPORT INFORMATION
  Report Type: Spontaneous
  Country: US (occurrence: None)
  Receive Date: 20140422
  Receipt Date: 20140422
  Transmission Date: 20141212
  Serious: Yes (Death)
  Sender: FDA-Public Use
  Company Number: None

PATIENT
  Age: 44 Year
  Sex: Male

DRUGS (13)
  1. LETAIRIS [Suspect]
     Indication: PULMONARY HYPERTENSION
     Route: 048
     Dates: start: 200812, end: 201404
  2. REMODULIN [Concomitant]
  3. VIAGRA [Concomitant]
  4. LASIX [Concomitant]
  5. METOLAZONE [Concomitant]
  6. K-TAB [Concomitant]
  7. ATIVAN [Concomitant]
  8. CELEXA [Concomitant]
  9. PRILOSEC [Concomitant]
  10. DURAGESIC [Concomitant]
  11. HALDOL [Concomitant]
  12. SENNA [Concomitant]
  13. MUCINEX [Concomitant]

REACTIONS (4)
  - Hypophagia [None]
  - Hypotension [None]
  - Terminal state [None]
  - Drug intolerance [None]
